FAERS Safety Report 10149951 (Version 1)
Quarter: 2014Q2

REPORT INFORMATION
  Report Type: Spontaneous
  Country: US (occurrence: None)
  Receive Date: 20140501
  Receipt Date: 20140501
  Transmission Date: 20141212
  Serious: Yes (Death)
  Sender: FDA-Public Use
  Company Number: None

PATIENT
  Age: 89 Year
  Sex: Female

DRUGS (1)
  1. XARELTO [Suspect]
     Dosage: 1 DOSE QD ORAL
     Route: 048

REACTIONS (5)
  - Fall [None]
  - Head injury [None]
  - Back pain [None]
  - Subdural haematoma [None]
  - Brain midline shift [None]
